FAERS Safety Report 8255181-9 (Version None)
Quarter: 2012Q1

REPORT INFORMATION
  Report Type: 
  Country: None (occurrence: None)
  Receive Date: 20120322
  Receipt Date: 20120210
  Transmission Date: 20120608
  Serious: Yes (Hospitalization)
  Sender: FDA-Public Use
  Company Number: UTC-015490

PATIENT
  Age: 62 Year
  Sex: Male

DRUGS (1)
  1. TYVASO [Suspect]
     Indication: PULMONARY ARTERIAL HYPERTENSION
     Dosage: 216 MCG	(54 MCG,4 IN 1 D), INHALATION
     Route: 055
     Dates: start: 20110601

REACTIONS (2)
  - INTESTINAL OBSTRUCTION [None]
  - HERNIA [None]
